FAERS Safety Report 10051582 (Version 1)
Quarter: 2014Q2

REPORT INFORMATION
  Report Type: Spontaneous
  Country: ES (occurrence: ES)
  Receive Date: 20140401
  Receipt Date: 20140401
  Transmission Date: 20141212
  Serious: Yes (Life-Threatening, Hospitalization)
  Sender: FDA-Public Use
  Company Number: PHHY2014ES037589

PATIENT
  Age: 78 Year
  Sex: Male

DRUGS (14)
  1. SINTROM [Suspect]
     Indication: ATRIAL FIBRILLATION
     Dosage: UNK UKN, UNK
     Route: 048
     Dates: start: 20130425, end: 20130427
  2. SINTROM [Interacting]
     Dosage: UNK UKN, UNK
  3. ACETYLSALICYLIC ACID [Interacting]
     Indication: ACUTE MYOCARDIAL INFARCTION
     Dosage: 100 MG, QD
     Route: 048
     Dates: start: 2005
  4. CLOPIDOGREL [Interacting]
     Indication: PROSTHESIS IMPLANTATION
     Dosage: 75 MG, QD
     Route: 048
     Dates: start: 20130409
  5. CLEXANE [Interacting]
     Indication: ATRIAL FIBRILLATION
     Dosage: 60 MG, BID
     Route: 058
     Dates: start: 20130403, end: 20130427
  6. LORAZEPAM [Concomitant]
     Indication: INSOMNIA
     Dosage: UNK UKN, UNK
     Dates: start: 20130409
  7. THIETHYLPERAZINE [Concomitant]
     Dosage: 6.5 MG, BID
     Route: 048
     Dates: start: 20130424, end: 20130426
  8. PARACETAMOL [Concomitant]
     Dosage: 1 G, TID
     Route: 042
     Dates: start: 20130404
  9. LEVOTHYROXINE [Concomitant]
     Indication: HYPOTHYROIDISM
     Dosage: 25 UG, DAILY
     Route: 048
     Dates: start: 20130409
  10. PANTOPRAZOLE [Concomitant]
     Indication: PROPHYLAXIS AGAINST GASTROINTESTINAL ULCER
     Dosage: 40 MG, DAILY
     Route: 048
     Dates: start: 20130404
  11. AMIODARONE [Concomitant]
     Indication: ARRHYTHMIA
     Dosage: 200 MG, TID
     Route: 048
     Dates: start: 20130417
  12. CARVEDILOL [Concomitant]
     Indication: CARDIAC FAILURE CONGESTIVE
     Dosage: 12.5 MG, BID
     Route: 048
     Dates: start: 20130417
  13. RAMIPRIL [Concomitant]
     Indication: HYPERTENSION
     Dosage: 5 MG, DAILY
     Route: 048
     Dates: start: 20130409
  14. ATORVASTATIN [Concomitant]
     Indication: MYOCARDIAL ISCHAEMIA
     Dosage: 80 MG, DAILY
     Route: 048
     Dates: start: 20130404

REACTIONS (3)
  - Cardiac tamponade [Recovered/Resolved]
  - Pericardial haemorrhage [Recovered/Resolved]
  - Drug interaction [Unknown]
